FAERS Safety Report 13943179 (Version 1)
Quarter: 2017Q3

REPORT INFORMATION
  Report Type: Spontaneous
  Country: US (occurrence: None)
  Receive Date: 20170907
  Receipt Date: 20170907
  Transmission Date: 20171128
  Serious: No
  Sender: FDA-Public Use
  Company Number: None

PATIENT
  Age: 44 Year
  Sex: Male

DRUGS (1)
  1. SUTENT [Suspect]
     Active Substance: SUNITINIB MALATE
     Indication: METASTASES TO LIVER
     Route: 048
     Dates: start: 20170511

REACTIONS (4)
  - Dry skin [None]
  - Diarrhoea [None]
  - Erythema [None]
  - Fatigue [None]

NARRATIVE: CASE EVENT DATE: 20170904
